FAERS Safety Report 10049046 (Version 1)
Quarter: 2014Q1

REPORT INFORMATION
  Report Type: Spontaneous
  Country: CN (occurrence: CN)
  Receive Date: 20140331
  Receipt Date: 20140331
  Transmission Date: 20141002
  Serious: Yes (Other)
  Sender: FDA-Public Use
  Company Number: CN-JNJFOC-20140311235

PATIENT
  Sex: 0

DRUGS (4)
  1. PARACETAMOL [Suspect]
     Indication: PAIN
     Route: 065
  2. PARACETAMOL [Suspect]
     Indication: PYREXIA
     Route: 065
  3. IBUPROFEN [Suspect]
     Indication: PAIN
     Route: 065
  4. IBUPROFEN [Suspect]
     Indication: PYREXIA
     Route: 065

REACTIONS (1)
  - Renal failure acute [Unknown]
